FAERS Safety Report 8896651 (Version 1)
Quarter: 2012Q4

REPORT INFORMATION
  Report Type: Spontaneous
  Country: US (occurrence: None)
  Receive Date: 20121102
  Receipt Date: 20121102
  Transmission Date: 20130627
  Serious: Yes (Hospitalization)
  Sender: FDA-Public Use
  Company Number: LMI-2012-00350

PATIENT
  Sex: Female

DRUGS (1)
  1. CARDIOLITE [Suspect]
     Indication: PARATHYROID DISORDER
     Route: 040
     Dates: start: 20121018, end: 20121018

REACTIONS (4)
  - Drug hypersensitivity [None]
  - Pharyngeal oedema [None]
  - Rash pruritic [None]
  - Swollen tongue [None]
